FAERS Safety Report 5585951-7 (Version None)
Quarter: 2007Q4

REPORT INFORMATION
  Report Type: 
  Country: None (occurrence: None)
  Receive Date: 20071205
  Receipt Date: 20070320
  Transmission Date: 20080405
  Serious: Yes (Other)
  Sender: FDA-Public Use
  Company Number: HQWYE380121MAR07

PATIENT
  Age: 26 Year
  Sex: Female
  Weight: 55.84 kg

DRUGS (3)
  1. EFFEXOR XR [Suspect]
     Indication: MAJOR DEPRESSION
     Dosage: 75 MG 1X PER 1 DAY, ORAL
     Route: 048
     Dates: start: 20060316, end: 20070320
  2. ETHANOL (ETHANOL, ) [Suspect]
     Dosage: DRANK A BLOODY MARY, ORAL
     Route: 048
  3. AMBIEN [Concomitant]

REACTIONS (1)
  - CONVULSION [None]
